FAERS Safety Report 10450959 (Version 4)
Quarter: 2014Q4

REPORT INFORMATION
  Report Type: Spontaneous
  Country: IT (occurrence: IT)
  Receive Date: 20140912
  Receipt Date: 20141201
  Transmission Date: 20150528
  Serious: Yes (Hospitalization)
  Sender: FDA-Public Use
  Company Number: IT-PFIZER INC-2014250645

PATIENT
  Age: 71 Year
  Sex: Female
  Weight: 71 kg

DRUGS (4)
  1. TORVAST [Concomitant]
     Active Substance: ATORVASTATIN
     Indication: MYOCARDIAL ISCHAEMIA
     Dosage: 20 MG, UNK
     Route: 048
  2. TYGACIL [Suspect]
     Active Substance: TIGECYCLINE
     Indication: LOCALISED INFECTION
     Dosage: 50 MG, DAILY
     Route: 042
     Dates: start: 20140808, end: 20140822
  3. TAZOPENIL [Suspect]
     Active Substance: PIPERACILLIN SODIUM\TAZOBACTAM SODIUM
     Indication: LOCALISED INFECTION
     Dosage: 6.75 G, DAILY
     Route: 042
     Dates: start: 20140808, end: 20140822
  4. DELTACORTENE [Concomitant]
     Active Substance: PREDNISONE
     Indication: GRANULOMATOSIS WITH POLYANGIITIS
     Dosage: 10 MG, UNK
     Route: 048

REACTIONS (2)
  - Hepatitis acute [Recovering/Resolving]
  - Rhabdomyolysis [Recovering/Resolving]

NARRATIVE: CASE EVENT DATE: 20140822
